FAERS Safety Report 8225264-8 (Version None)
Quarter: 2012Q1

REPORT INFORMATION
  Report Type: 
  Country: None (occurrence: None)
  Receive Date: 20120307
  Receipt Date: 20110110
  Transmission Date: 20120608
  Serious: No
  Sender: FDA-Public Use
  Company Number: PHHY2011US01667

PATIENT
  Age: 31 Year
  Sex: Female

DRUGS (1)
  1. AFINITOR [Suspect]
     Indication: ASTROCYTOMA
     Dosage: 5 MG, DAILY, ORAL
     Route: 048
     Dates: start: 20101222

REACTIONS (2)
  - FATIGUE [None]
  - HYPERSOMNIA [None]
